FAERS Safety Report 20595679 (Version 4)
Quarter: 2022Q2

REPORT INFORMATION
  Report Type: Spontaneous
  Country: US (occurrence: US)
  Receive Date: 20220315
  Receipt Date: 20220616
  Transmission Date: 20220721
  Serious: Yes (Hospitalization, Other)
  Sender: FDA-Public Use
  Company Number: US-SA-2022SA080313

PATIENT
  Age: 75 Year
  Sex: Female
  Weight: 73 kg

DRUGS (15)
  1. OXALIPLATIN [Suspect]
     Active Substance: OXALIPLATIN
     Indication: Adenocarcinoma pancreas
     Dosage: DAY 1 AND 15 OF EVERY 28-DAYS CYCLE (159.8 MG)
     Route: 042
     Dates: start: 20220209, end: 20220209
  2. IRINOTECAN [Suspect]
     Active Substance: IRINOTECAN
     Indication: Adenocarcinoma pancreas
     Dosage: DAY 1 AND 15 OF EVERY 28-DAYS CYCLE (282 MG)
     Route: 042
     Dates: start: 20220209, end: 20220209
  3. FLUOROURACIL [Suspect]
     Active Substance: FLUOROURACIL
     Indication: Adenocarcinoma pancreas
     Dosage: DAYS 1, 3, 15 AND 17 OF EVERY 28-DAYS CYCLE (4512 MG)
     Route: 042
     Dates: start: 20220209, end: 20220209
  4. LEUCOVORIN [Suspect]
     Active Substance: LEUCOVORIN
     Indication: Adenocarcinoma pancreas
     Dosage: DAY 1 AND 15 OF EVERY 28-DAYS CYCLE (752 MG)
     Route: 042
     Dates: start: 20220209, end: 20220209
  5. BUDIGALIMAB [Suspect]
     Active Substance: BUDIGALIMAB
     Dosage: DAY 3 OF EVERY 28-DAYS CYCLE (500 MG)
     Route: 042
     Dates: start: 20220211, end: 20220211
  6. POTASSIUM CHLORIDE [Concomitant]
     Active Substance: POTASSIUM CHLORIDE
     Indication: Hypokalaemia
     Dosage: UNK
     Route: 048
     Dates: start: 20220207
  7. ACETAMINOPHEN [Concomitant]
     Active Substance: ACETAMINOPHEN
     Indication: Abdominal pain
     Dosage: 1000 MG
     Route: 048
     Dates: start: 20210801
  8. OMEPRAZOLE [Concomitant]
     Active Substance: OMEPRAZOLE
     Indication: Gastrooesophageal reflux disease
     Dosage: 20 MG, QD
     Dates: start: 20220127
  9. MYLANTA [Concomitant]
     Active Substance: ALUMINUM HYDROXIDE\DIMETHICONE\MAGNESIUM HYDROXIDE
     Indication: Gastrooesophageal reflux disease
     Dosage: 10 ML
     Dates: start: 20220127
  10. LISINOPRIL AND HYDROCHLOROTHIAZIDE [Concomitant]
     Active Substance: HYDROCHLOROTHIAZIDE\LISINOPRIL
     Indication: Hypertension
     Dosage: T TABLET, QD
     Dates: start: 20140827
  11. VITAMIN D3 [Concomitant]
     Active Substance: CHOLECALCIFEROL
     Indication: Vitamin supplementation
     Dosage: 5000 IU
     Route: 048
     Dates: start: 20220127
  12. ASCORBIC ACID [Concomitant]
     Active Substance: ASCORBIC ACID
     Indication: Vitamin supplementation
     Dosage: 500 MG, QD
     Route: 048
     Dates: start: 20220127
  13. TRAMADOL [Concomitant]
     Active Substance: TRAMADOL
     Indication: Abdominal pain
     Dosage: 50 MG, PRN
     Route: 048
     Dates: start: 20220207
  14. TRAMADOL [Concomitant]
     Active Substance: TRAMADOL
     Indication: Flank pain
  15. APIXABAN [Concomitant]
     Active Substance: APIXABAN
     Indication: Angiopathy
     Dosage: 5 MG, BID
     Dates: start: 20211222

REACTIONS (9)
  - Malaise [Recovered/Resolved]
  - Bacteraemia [Recovered/Resolved]
  - Back pain [Recovered/Resolved]
  - Fatigue [Recovered/Resolved]
  - Decreased appetite [Recovered/Resolved]
  - Diarrhoea [Unknown]
  - Dehydration [Unknown]
  - Vomiting [Unknown]
  - Nausea [Unknown]

NARRATIVE: CASE EVENT DATE: 20220201
